FAERS Safety Report 18216878 (Version 2)
Quarter: 2020Q3

REPORT INFORMATION
  Report Type: Spontaneous
  Country: GB (occurrence: GB)
  Receive Date: 20200901
  Receipt Date: 20200919
  Transmission Date: 20201103
  Serious: Yes (Life-Threatening, Disabling, Other)
  Sender: FDA-Public Use
  Company Number: GB-ACCORD-198275

PATIENT
  Age: 22 Year
  Sex: Male
  Weight: 73.02 kg

DRUGS (5)
  1. FLUTICASONE. [Concomitant]
     Active Substance: FLUTICASONE
     Indication: ASTHMA
     Dates: start: 2010, end: 2016
  2. PENTASA [Concomitant]
     Active Substance: MESALAMINE
     Dates: start: 2010, end: 2016
  3. METHOTREXATE. [Suspect]
     Active Substance: METHOTREXATE
     Indication: CROHN^S DISEASE
     Route: 048
     Dates: start: 20101110, end: 20180701
  4. FLUOXETINE [Suspect]
     Active Substance: FLUOXETINE HYDROCHLORIDE
     Indication: ANXIETY
     Route: 048
     Dates: start: 20100901, end: 20121130
  5. MIRTAZAPINE. [Suspect]
     Active Substance: MIRTAZAPINE
     Indication: ANXIETY
     Route: 048
     Dates: start: 20121214, end: 20160201

REACTIONS (21)
  - Agitation [Recovered/Resolved with Sequelae]
  - Muscle atrophy [Not Recovered/Not Resolved]
  - Abnormal loss of weight [Unknown]
  - Cachexia [Not Recovered/Not Resolved]
  - Exercise tolerance decreased [Unknown]
  - Stress [Recovered/Resolved with Sequelae]
  - Depersonalisation/derealisation disorder [Recovered/Resolved with Sequelae]
  - Panic attack [Recovered/Resolved with Sequelae]
  - Asthenia [Unknown]
  - Skin disorder [Unknown]
  - Crohn^s disease [Recovering/Resolving]
  - Insomnia [Unknown]
  - Depression [Not Recovered/Not Resolved]
  - Personality change [Recovered/Resolved with Sequelae]
  - Feeling abnormal [Unknown]
  - Hyperhidrosis [Recovered/Resolved]
  - Fatigue [Unknown]
  - Weight gain poor [Unknown]
  - Restlessness [Recovered/Resolved with Sequelae]
  - Anxiety [Recovered/Resolved with Sequelae]
  - Disturbance in attention [Unknown]

NARRATIVE: CASE EVENT DATE: 20100901
